FAERS Safety Report 4783121-3 (Version None)
Quarter: 2005Q3

REPORT INFORMATION
  Report Type: 
  Country: None (occurrence: None)
  Receive Date: 20050914
  Receipt Date: 20040924
  Transmission Date: 20060218
  Serious: Yes (Disabling)
  Sender: FDA-Public Use
  Company Number: 163-20785-04040095

PATIENT
  Age: 69 Year
  Sex: Female

DRUGS (3)
  1. THALOMID [Suspect]
     Indication: MULTIPLE MYELOMA
     Dosage: 100-350MG, DAILY, ORAL
     Route: 048
     Dates: start: 20010604, end: 20031208
  2. CYTOXAN [Concomitant]
  3. PREDNISONE [Concomitant]

REACTIONS (1)
  - NEUROPATHY PERIPHERAL [None]
